FAERS Safety Report 5907707-5 (Version None)
Quarter: 2008Q4

REPORT INFORMATION
  Report Type: 
  Country: None (occurrence: None)
  Receive Date: 20081003
  Receipt Date: 19860926
  Transmission Date: 20090506
  Serious: Yes (Death, Hospitalization, Other)
  Sender: FDA-Public Use
  Company Number: US-ROCHE-860201202001

PATIENT
  Age: 19 Year
  Sex: Female

DRUGS (3)
  1. ROFERON-A [Suspect]
     Route: 030
     Dates: start: 19860623
  2. ROFERON-A [Suspect]
     Route: 030
     Dates: end: 19860808
  3. INTERFERON GAMMA [Concomitant]
     Dosage: DOSING: .15-.74 MG DAILY
     Route: 065

REACTIONS (12)
  - CARDIAC FAILURE [None]
  - HEPATOSPLENOMEGALY [None]
  - HYPOTENSION [None]
  - INTERSTITIAL LUNG DISEASE [None]
  - OEDEMA [None]
  - PLEURAL EFFUSION [None]
  - PULMONARY ALVEOLAR HAEMORRHAGE [None]
  - PULMONARY ARTERIAL HYPERTENSION [None]
  - PULMONARY CONGESTION [None]
  - RESPIRATORY DISTRESS [None]
  - THROMBOSIS [None]
  - WITHDRAWAL OF LIFE SUPPORT [None]
